FAERS Safety Report 9643566 (Version 1)
Quarter: 2013Q4

REPORT INFORMATION
  Report Type: Spontaneous
  Country: US (occurrence: US)
  Receive Date: 20131024
  Receipt Date: 20131024
  Transmission Date: 20140711
  Serious: Yes (Other)
  Sender: FDA-Public Use
  Company Number: US-GLAXOSMITHKLINE-A1026954A

PATIENT
  Age: 82 Year
  Sex: Male
  Weight: 68.4 kg

DRUGS (9)
  1. VOTRIENT [Suspect]
     Indication: RENAL NEOPLASM
     Dosage: 800MG PER DAY
     Dates: start: 20130502, end: 20130820
  2. ASPIRIN [Concomitant]
  3. MULTIVITAMIN [Concomitant]
  4. WARFARIN [Concomitant]
  5. ZETIA [Concomitant]
  6. AMLODIPINE [Concomitant]
  7. ATORVASTATIN [Concomitant]
  8. LOSARTAN [Concomitant]
  9. ZOFRAN [Concomitant]

REACTIONS (4)
  - Dehydration [Unknown]
  - Diarrhoea [Unknown]
  - Drooling [Unknown]
  - Malaise [Unknown]
